FAERS Safety Report 5411514-X (Version None)
Quarter: 2007Q3

REPORT INFORMATION
  Report Type: 
  Country: None (occurrence: None)
  Receive Date: 20070810
  Receipt Date: 20070807
  Transmission Date: 20080115
  Serious: Yes (Hospitalization)
  Sender: FDA-Public Use
  Company Number: US-BOEHRINGER INGELHEIM PHARMACEUTICALS, INC.-2007-BP-17543BP

PATIENT
  Age: 84 Year
  Sex: Female
  Weight: 46 kg

DRUGS (6)
  1. MIRAPEX [Suspect]
     Indication: PARKINSON'S DISEASE
     Route: 048
     Dates: start: 20070713
  2. MIRAPEX [Suspect]
     Route: 048
     Dates: start: 20070710, end: 20070711
  3. ATENOLOL [Concomitant]
     Dates: end: 20070711
  4. LISINOPRIL [Concomitant]
     Dates: start: 20070712
  5. CYMBALTA [Concomitant]
  6. LOPERAMIDE HCL [Concomitant]
     Dates: end: 20070711

REACTIONS (4)
  - HYPERTENSION [None]
  - HYPOTENSION [None]
  - SYNCOPE [None]
  - UNRESPONSIVE TO STIMULI [None]
